FAERS Safety Report 5147579-2 (Version None)
Quarter: 2006Q4

REPORT INFORMATION
  Report Type: 
  Country: None (occurrence: None)
  Receive Date: 20061106
  Receipt Date: 20061024
  Transmission Date: 20070319
  Serious: Yes (Hospitalization, Other)
  Sender: FDA-Public Use
  Company Number: 2006129983

PATIENT
  Age: 13 Year
  Sex: Male
  Weight: 56.6996 kg

DRUGS (1)
  1. ALPRAZOLAM [Suspect]
     Indication: DEPRESSION
     Dosage: 0.5 MG (0.5 MG, 1 IN 1 D)
     Dates: start: 20060101, end: 20060101

REACTIONS (3)
  - MONOPARESIS [None]
  - SCIATIC NERVE INJURY [None]
  - TREATMENT NONCOMPLIANCE [None]
